FAERS Safety Report 9900085 (Version 1)
Quarter: 2014Q1

REPORT INFORMATION
  Report Type: Spontaneous
  Country: FR (occurrence: FR)
  Receive Date: 20140214
  Receipt Date: 20140214
  Transmission Date: 20141002
  Serious: Yes (Hospitalization, Other)
  Sender: FDA-Public Use
  Company Number: FR-GILEAD-2014-0094456

PATIENT
  Age: 48 Year
  Sex: Male
  Weight: 63 kg

DRUGS (4)
  1. TRUVADA [Suspect]
     Indication: HIV INFECTION
     Dosage: UNK
     Route: 048
     Dates: start: 20110520, end: 20120324
  2. ISENTRESS [Concomitant]
     Dosage: UNK
     Dates: start: 20110520
  3. VIREAD [Concomitant]
     Indication: HIV INFECTION
     Dosage: UNK
     Route: 048
     Dates: start: 20130513
  4. VIREAD [Concomitant]
     Dosage: UNK
     Route: 048
     Dates: start: 20130516

REACTIONS (2)
  - Nephrolithiasis [Recovered/Resolved]
  - Renal failure acute [Recovered/Resolved with Sequelae]
